FAERS Safety Report 9607800 (Version 1)
Quarter: 2013Q4

REPORT INFORMATION
  Report Type: Spontaneous
  Country: US (occurrence: None)
  Receive Date: 20131008
  Receipt Date: 20131008
  Transmission Date: 20140711
  Serious: Yes (Life-Threatening, Hospitalization, Disabling)
  Sender: FDA-Public Use
  Company Number: None

PATIENT
  Age: 38 Year
  Sex: Male
  Weight: 104.33 kg

DRUGS (3)
  1. CELEBREX [Suspect]
     Indication: PAIN
     Dosage: ONCE DAILY
     Dates: start: 20091103, end: 20091109
  2. CELEBREX [Suspect]
     Indication: BLOOD PRESSURE
     Dosage: ONCE DAILY
     Dates: start: 20091103, end: 20091109
  3. LISINOPRIL 20 MG [Suspect]
     Dosage: ONCE DAILY
     Dates: start: 20091103, end: 20091111

REACTIONS (2)
  - Renal failure [None]
  - Dialysis [None]
